FAERS Safety Report 11754991 (Version 1)
Quarter: 2015Q4

REPORT INFORMATION
  Report Type: Report from Study
  Country: US (occurrence: US)
  Receive Date: 20151119
  Receipt Date: 20151119
  Transmission Date: 20160304
  Serious: Yes (Hospitalization)
  Sender: FDA-Public Use
  Company Number: US-JNJFOC-20151108401

PATIENT
  Sex: Female
  Weight: 78.47 kg

DRUGS (3)
  1. RISPERDAL [Suspect]
     Active Substance: RISPERIDONE
     Indication: PRODUCT USED FOR UNKNOWN INDICATION
     Dosage: 1 TABLET IN AM AND 2 AT BEDTIME
     Route: 048
  2. TRAZODONE [Suspect]
     Active Substance: TRAZODONE HYDROCHLORIDE
     Indication: PRODUCT USED FOR UNKNOWN INDICATION
     Route: 065
  3. VILAZODONE [Suspect]
     Active Substance: VILAZODONE
     Indication: PRODUCT USED FOR UNKNOWN INDICATION
     Route: 065

REACTIONS (26)
  - Headache [Unknown]
  - Amnesia [Unknown]
  - Chest pain [Unknown]
  - Delusion [Unknown]
  - Musculoskeletal stiffness [Unknown]
  - Temperature intolerance [Unknown]
  - Homicidal ideation [Unknown]
  - Palpitations [Unknown]
  - Dyspnoea [Unknown]
  - Anxiety [Recovered/Resolved]
  - Treatment noncompliance [Not Recovered/Not Resolved]
  - Sleep disorder [Recovered/Resolved]
  - Dizziness [Unknown]
  - Chills [Unknown]
  - Nausea [Unknown]
  - Mood swings [Recovered/Resolved]
  - Asthenia [Unknown]
  - Myalgia [Unknown]
  - Back pain [Unknown]
  - Pruritus [Unknown]
  - Dyspepsia [Unknown]
  - Abdominal pain [Unknown]
  - Hallucination, auditory [Not Recovered/Not Resolved]
  - Hypoaesthesia [Unknown]
  - Fatigue [Unknown]
  - Arthralgia [Unknown]
